FAERS Safety Report 9434164 (Version 1)
Quarter: 2013Q3

REPORT INFORMATION
  Report Type: Other
  Country: JP (occurrence: JP)
  Receive Date: 20130801
  Receipt Date: 20130801
  Transmission Date: 20140515
  Serious: Yes (Hospitalization)
  Sender: FDA-Public Use
  Company Number: JP-BRISTOL-MYERS SQUIBB COMPANY-19156793

PATIENT
  Sex: 0

DRUGS (3)
  1. ERBITUX SOLN FOR INF 5MG/ML [Suspect]
     Indication: RECTAL CANCER
     Route: 041
  2. IRINOTECAN [Suspect]
     Indication: RECTAL CANCER
     Dosage: INFUSION
     Route: 041
  3. TS-1 [Suspect]
     Indication: RECTAL CANCER
     Dosage: INFUSION
     Route: 048

REACTIONS (1)
  - Rectal perforation [Recovered/Resolved]
